FAERS Safety Report 10083958 (Version 1)
Quarter: 2014Q2

REPORT INFORMATION
  Report Type: Spontaneous
  Country: BR (occurrence: BR)
  Receive Date: 20140417
  Receipt Date: 20140417
  Transmission Date: 20141212
  Serious: Yes (Hospitalization, Other)
  Sender: FDA-Public Use
  Company Number: BR-NOVOPROD-406162

PATIENT
  Age: 81 Year
  Sex: Male
  Weight: 92 kg

DRUGS (1)
  1. NOVOMIX 30 FLEXPEN [Suspect]
     Indication: TYPE 2 DIABETES MELLITUS
     Dosage: 24 IU, QD (ONCE A DAY)
     Route: 065
     Dates: start: 2010, end: 20140331

REACTIONS (4)
  - Sensory loss [Not Recovered/Not Resolved]
  - Amnesia [Not Recovered/Not Resolved]
  - Renal neoplasm [Unknown]
  - Pain in extremity [Unknown]
